FAERS Safety Report 5802127-6 (Version None)
Quarter: 2008Q3

REPORT INFORMATION
  Report Type: 
  Country: None (occurrence: None)
  Receive Date: 20080707
  Receipt Date: 20080626
  Transmission Date: 20090109
  Serious: Yes (Life-Threatening, Hospitalization)
  Sender: FDA-Public Use
  Company Number: SG-PFIZER INC-2007049272

PATIENT
  Sex: Female

DRUGS (5)
  1. SU-011,248 [Suspect]
     Indication: BREAST CANCER
     Route: 048
     Dates: start: 20070507, end: 20070617
  2. ANAREX [Concomitant]
     Route: 048
     Dates: start: 20070507, end: 20070513
  3. HIRUDOID [Concomitant]
     Route: 061
     Dates: start: 20070507, end: 20070514
  4. PROCODIN [Concomitant]
     Route: 048
     Dates: start: 20070521, end: 20070530
  5. AUGMENTIN '125' [Concomitant]
     Route: 048
     Dates: start: 20070601, end: 20070607

REACTIONS (1)
  - PNEUMOTHORAX [None]
